FAERS Safety Report 7602671-5 (Version None)
Quarter: 2011Q3

REPORT INFORMATION
  Report Type: 
  Country: None (occurrence: None)
  Receive Date: 20110712
  Receipt Date: 20110630
  Transmission Date: 20111222
  Serious: Yes (Hospitalization, Other)
  Sender: FDA-Public Use
  Company Number: FR-ELI_LILLY_AND_COMPANY-FR201106008754

PATIENT
  Sex: Male

DRUGS (6)
  1. KALETRA [Concomitant]
     Dosage: UNK
     Dates: start: 20090101
  2. ZYPREXA [Suspect]
     Dosage: UNK
     Dates: end: 20110519
  3. COMBIVIR [Concomitant]
     Dosage: UNK
     Dates: start: 20090101
  4. ISENTRESS [Concomitant]
     Dosage: UNK
     Dates: start: 20101101
  5. XANAX [Concomitant]
  6. WELLVONE [Concomitant]
     Dosage: UNK
     Dates: start: 20090101

REACTIONS (4)
  - LEUKOPENIA [None]
  - BRONCHITIS [None]
  - GENERAL PHYSICAL HEALTH DETERIORATION [None]
  - FEBRILE NEUTROPENIA [None]
